FAERS Safety Report 21458616 (Version 1)
Quarter: 2022Q4

REPORT INFORMATION
  Report Type: Spontaneous
  Country: US (occurrence: None)
  Receive Date: 20221013
  Receipt Date: 20221013
  Transmission Date: 20230113
  Serious: Yes (Life-Threatening, Hospitalization, Disabling, Other)
  Sender: FDA-Public Use
  Company Number: None

PATIENT
  Age: 43 Year
  Weight: 104.4 kg

DRUGS (5)
  1. GABAPENTIN [Suspect]
     Active Substance: GABAPENTIN
     Indication: Neuralgia
     Dosage: OTHER QUANTITY : 1 CAPSULE(S)?FREQUENCY : EVERY 8 HOURS  ORAL?
     Route: 048
     Dates: start: 20211220, end: 20220911
  2. METFORMIN [Concomitant]
     Active Substance: METFORMIN HYDROCHLORIDE
  3. VALSARTAN [Concomitant]
     Active Substance: VALSARTAN
  4. TESTOSTERONE [Concomitant]
     Active Substance: TESTOSTERONE
  5. AMBIEN [Concomitant]
     Active Substance: ZOLPIDEM TARTRATE

REACTIONS (4)
  - Gait disturbance [None]
  - Muscle twitching [None]
  - Confusional state [None]
  - Mental disorder [None]

NARRATIVE: CASE EVENT DATE: 20220531
